FAERS Safety Report 19480455 (Version 1)
Quarter: 2021Q3

REPORT INFORMATION
  Report Type: Spontaneous
  Country: US (occurrence: US)
  Receive Date: 20210701
  Receipt Date: 20210701
  Transmission Date: 20211014
  Serious: No
  Sender: FDA-Public Use
  Company Number: US-TOLMAR, INC.-21US027454

PATIENT
  Sex: Male

DRUGS (1)
  1. KETOCONAZOLE. [Suspect]
     Active Substance: KETOCONAZOLE
     Indication: ALOPECIA
     Dosage: UNK UNK, 3/WEEK
     Route: 003
     Dates: start: 2021

REACTIONS (4)
  - Rash [Unknown]
  - Dry skin [Unknown]
  - Pruritus [Recovered/Resolved]
  - Off label use [Unknown]
